FAERS Safety Report 8598337-8 (Version None)
Quarter: 2012Q3

REPORT INFORMATION
  Report Type: 
  Country: None (occurrence: None)
  Receive Date: 20120816
  Receipt Date: 20120809
  Transmission Date: 20120928
  Serious: Yes (Hospitalization, Other)
  Sender: FDA-Public Use
  Company Number: US-JNJFOC-20120805162

PATIENT
  Sex: Female

DRUGS (3)
  1. NUCYNTA [Suspect]
     Route: 048
  2. NUCYNTA [Suspect]
     Route: 048
     Dates: start: 20120801
  3. NUCYNTA [Suspect]
     Indication: BACK PAIN
     Route: 048
     Dates: end: 20120801

REACTIONS (10)
  - HEADACHE [None]
  - INADEQUATE ANALGESIA [None]
  - DRUG ABUSE [None]
  - BACK DISORDER [None]
  - WITHDRAWAL SYNDROME [None]
  - NAUSEA [None]
  - HYPERHIDROSIS [None]
  - CYST [None]
  - FEELING OF BODY TEMPERATURE CHANGE [None]
  - PROCEDURAL PAIN [None]
